FAERS Safety Report 4514449-X (Version None)
Quarter: 2004Q4

REPORT INFORMATION
  Report Type: 
  Country: None (occurrence: None)
  Receive Date: 20040928
  Receipt Date: 20040716
  Transmission Date: 20050328
  Serious: No
  Sender: FDA-Public Use
  Company Number: 04P-163-0267479-00

PATIENT
  Age: 59 Year
  Sex: Female
  Weight: 55.3388 kg

DRUGS (4)
  1. HUMIRA [Suspect]
     Indication: RHEUMATOID ARTHRITIS
     Dosage: 40 MG, 1 IN 2 WK, SUBCUTANEOUS
     Route: 058
     Dates: start: 20030101
  2. CONJUGATED ESTROGEN [Concomitant]
  3. PREDNISONE [Concomitant]
  4. ESOMEPRAZOLE [Concomitant]

REACTIONS (4)
  - ASTHENIA [None]
  - CHILLS [None]
  - DECREASED APPETITE [None]
  - WEIGHT DECREASED [None]
